FAERS Safety Report 10755763 (Version 5)
Quarter: 2015Q3

REPORT INFORMATION
  Report Type: Report from Study
  Country: KR (occurrence: KR)
  Receive Date: 20150202
  Receipt Date: 20150930
  Transmission Date: 20151125
  Serious: Yes (Hospitalization)
  Sender: FDA-Public Use
  Company Number: KR-009507513-1412USA013155

PATIENT
  Age: 69 Year
  Sex: Male
  Weight: 66.8 kg

DRUGS (19)
  1. PEMBROLIZUMAB. [Suspect]
     Active Substance: PEMBROLIZUMAB
     Indication: GASTRIC CANCER
     Dosage: 10 MG/KG, QOW
     Route: 042
     Dates: start: 20140205, end: 20141114
  2. DUROGESIC [Concomitant]
     Active Substance: FENTANYL
     Indication: ABDOMINAL PAIN
     Dosage: DAILY DOSE 25 MCG, PRN
     Route: 058
     Dates: start: 20141113
  3. SODIUM BICARBONATE. [Concomitant]
     Active Substance: SODIUM BICARBONATE
     Indication: MUCOSAL INFLAMMATION
     Dosage: TOTAL DAILY DOSE 10 MG, TID
     Route: 048
     Dates: start: 20140331
  4. TARGIN [Concomitant]
     Active Substance: NALOXONE HYDROCHLORIDE\OXYCODONE HYDROCHLORIDE
     Indication: ABDOMINAL PAIN
     Dosage: 1 TABLET, BID
     Route: 048
     Dates: start: 20141206, end: 20141226
  5. PEMBROLIZUMAB. [Suspect]
     Active Substance: PEMBROLIZUMAB
     Dosage: 10 MG/KG, QOW
     Route: 042
     Dates: start: 20141210, end: 20141210
  6. MEGACE F [Concomitant]
     Indication: DECREASED APPETITE
     Dosage: DAILY DOSE 1 PACK, PRN
     Route: 048
     Dates: start: 20140205
  7. FEROBA [Concomitant]
     Indication: ANAEMIA
     Dosage: 512 MG, QD
     Route: 048
     Dates: start: 20140317
  8. NORZYME [Concomitant]
     Indication: DYSPEPSIA
     Dosage: DAILY DOSE 3 TABLET, PRN
     Route: 048
     Dates: start: 20140204
  9. GODEX CAP [Concomitant]
     Indication: ASPARTATE AMINOTRANSFERASE INCREASED
     Dosage: 1 TABLET, TID
     Route: 048
     Dates: start: 20140709
  10. GODEX CAP [Concomitant]
     Indication: ALANINE AMINOTRANSFERASE INCREASED
  11. DUPHALAC [Concomitant]
     Active Substance: LACTULOSE
     Indication: CONSTIPATION
     Dosage: 15 ML, TID
     Route: 048
     Dates: start: 20141112
  12. AIRTAL [Concomitant]
     Indication: MYALGIA
     Dosage: 100 MG, BID
     Route: 048
     Dates: start: 20141113
  13. NEURONTIN [Concomitant]
     Active Substance: GABAPENTIN
     Indication: NEURALGIA
     Dosage: 100 MG, TID
     Route: 048
     Dates: start: 20141209
  14. DUROGESIC [Concomitant]
     Active Substance: FENTANYL
     Indication: ABDOMINAL PAIN
     Dosage: 50 MICROGRAM/H, PRN
     Route: 062
     Dates: start: 20141115
  15. MACPERAN [Concomitant]
     Indication: NAUSEA
     Dosage: 5 MG, QD
     Route: 048
     Dates: start: 20141209
  16. MACPERAN [Concomitant]
     Indication: NAUSEA
     Dosage: 10 MG, QD
     Route: 042
     Dates: start: 20141210, end: 20141210
  17. MUCOSTA [Concomitant]
     Active Substance: REBAMIPIDE
     Indication: PRODUCTIVE COUGH
     Dosage: 100 MG, TID
     Route: 048
     Dates: start: 20141206
  18. MAGNESIUM (UNSPECIFIED) [Concomitant]
     Active Substance: MAGNESIUM
     Indication: HYPOMAGNESAEMIA
     Dosage: 2 TABLET, TID
     Route: 048
     Dates: start: 20140820
  19. IRCODON [Concomitant]
     Indication: ABDOMINAL PAIN
     Dosage: 5 MG, PRN
     Route: 048
     Dates: start: 20141115

REACTIONS (1)
  - Interstitial lung disease [Recovered/Resolved]

NARRATIVE: CASE EVENT DATE: 20141224
